FAERS Safety Report 10111199 (Version 2)
Quarter: 2014Q4

REPORT INFORMATION
  Report Type: Other
  Country: US (occurrence: US)
  Receive Date: 20140425
  Receipt Date: 20141208
  Transmission Date: 20150528
  Serious: Yes (Hospitalization, Other)
  Sender: FDA-Public Use
  Company Number: US-GSKPPD-2014GSK007741

PATIENT
  Age: 56 Year
  Sex: Male

DRUGS (1)
  1. AVANDIA [Suspect]
     Active Substance: ROSIGLITAZONE MALEATE
     Indication: DIABETES MELLITUS
     Dosage: AVANDIA WAS NOT LISTED AMONG THE PATIENTS RECORDS REVIEWED.
     Route: 048

REACTIONS (8)
  - Pulmonary hypertension [Unknown]
  - Cardiac failure [Unknown]
  - Implantable defibrillator insertion [Recovered/Resolved]
  - Cardiac failure congestive [Recovered/Resolved]
  - Catheterisation cardiac [Recovered/Resolved]
  - Tachycardia [Unknown]
  - Angiogram [Recovered/Resolved]
  - Renal failure [Unknown]

NARRATIVE: CASE EVENT DATE: 20040709
